FAERS Safety Report 12598699 (Version 1)
Quarter: 2016Q3

REPORT INFORMATION
  Report Type: Spontaneous
  Country: US (occurrence: None)
  Receive Date: 20160726
  Receipt Date: 20160726
  Transmission Date: 20161109
  Serious: No
  Sender: FDA-Public Use
  Company Number: None

PATIENT
  Age: 46 Year
  Sex: Female

DRUGS (5)
  1. SPRYCEL [Suspect]
     Active Substance: DASATINIB
     Indication: MYELOID LEUKAEMIA
     Route: 048
     Dates: start: 20160603
  2. FLONASE [Concomitant]
     Active Substance: FLUTICASONE PROPIONATE
  3. FENOFIBRATE. [Concomitant]
     Active Substance: FENOFIBRATE
  4. ZOCOR [Concomitant]
     Active Substance: SIMVASTATIN
  5. PAZEO [Concomitant]
     Active Substance: OLOPATADINE HYDROCHLORIDE

REACTIONS (1)
  - Headache [None]

NARRATIVE: CASE EVENT DATE: 201607
